FAERS Safety Report 4376569-2 (Version None)
Quarter: 2004Q2

REPORT INFORMATION
  Report Type: 
  Country: None (occurrence: None)
  Receive Date: 20040614
  Receipt Date: 20040602
  Transmission Date: 20050107
  Serious: Yes (Other)
  Sender: FDA-Public Use
  Company Number: US-JNJFOC-20040601226

PATIENT
  Age: 33 Year
  Sex: Female

DRUGS (4)
  1. INFLIXIMAB [Suspect]
     Route: 042
  2. CYCLOPHOSPHAMIDE [Suspect]
  3. CYCLOPHOSPHAMIDE [Suspect]
     Indication: THROMBOTIC THROMBOCYTOPENIC PURPURA
     Dosage: TOTAL DOSE = 18 GM
  4. AZATHIOPRINE [Suspect]
     Indication: CROHN'S DISEASE

REACTIONS (14)
  - ABDOMINAL WALL DISORDER [None]
  - ACUTE MYELOID LEUKAEMIA [None]
  - ANAL FISTULA [None]
  - CHILLS [None]
  - COLONIC FISTULA [None]
  - CROHN'S DISEASE [None]
  - FEMALE GENITAL TRACT FISTULA [None]
  - FISTULA [None]
  - GINGIVAL BLEEDING [None]
  - HAEMOGLOBIN DECREASED [None]
  - IMMUNOSUPPRESSION [None]
  - MALAISE [None]
  - PYREXIA [None]
  - VASCULITIS GASTROINTESTINAL [None]
